FAERS Safety Report 4404172-4 (Version None)
Quarter: 2004Q3

REPORT INFORMATION
  Report Type: 
  Country: None (occurrence: None)
  Receive Date: 20040719
  Receipt Date: 20040713
  Transmission Date: 20050211
  Serious: Yes (Hospitalization)
  Sender: FDA-Public Use
  Company Number: 200410700BVD

PATIENT
  Sex: Female

DRUGS (1)
  1. AVELOX [Suspect]
     Indication: INFECTION
     Dosage: ORAL
     Route: 048

REACTIONS (6)
  - ARTHRALGIA [None]
  - DERMATITIS ALLERGIC [None]
  - HYPERSENSITIVITY [None]
  - JOINT SWELLING [None]
  - TOXIC EPIDERMAL NECROLYSIS [None]
  - URTICARIA GENERALISED [None]
